FAERS Safety Report 10372008 (Version 1)
Quarter: 2014Q3

REPORT INFORMATION
  Report Type: Spontaneous
  Country: US (occurrence: US)
  Receive Date: 20140808
  Receipt Date: 20140808
  Transmission Date: 20150326
  Serious: Yes (Other)
  Sender: FDA-Public Use
  Company Number: US-BAYER-2014-118065

PATIENT
  Sex: Female

DRUGS (1)
  1. BAYER CHEWABLE LOW DOSE ASPIRIN ORANGE FLAVORED [Suspect]
     Active Substance: ASPIRIN
     Dosage: WHOLE BOTTLE
     Route: 048

REACTIONS (2)
  - Accidental exposure to product by child [Unknown]
  - Adrenal gland cancer [Unknown]
